FAERS Safety Report 6557457-X (Version None)
Quarter: 2010Q1

REPORT INFORMATION
  Report Type: 
  Country: None (occurrence: None)
  Receive Date: 20100127
  Receipt Date: 20100127
  Transmission Date: 20100710
  Serious: Yes (Hospitalization)
  Sender: FDA-Public Use
  Company Number: None

PATIENT
  Age: 79 Year
  Sex: Female
  Weight: 60.5 kg

DRUGS (8)
  1. COUMADIN [Suspect]
     Indication: ATRIAL FIBRILLATION
     Dosage: 5 MG DAILY PO, CHRONIC
     Route: 048
  2. SYNTHROID [Concomitant]
  3. ALLOPURINOL [Concomitant]
  4. COLCHICINE [Concomitant]
  5. DILTIAZEM HCL [Concomitant]
  6. ATIVAN [Concomitant]
  7. RENAL CAPS [Concomitant]
  8. ZOCOR [Concomitant]

REACTIONS (6)
  - ASTHENIA [None]
  - DIALYSIS [None]
  - DIARRHOEA [None]
  - HYPERTENSION [None]
  - INTERNATIONAL NORMALISED RATIO INCREASED [None]
  - OESOPHAGEAL ULCER HAEMORRHAGE [None]
